FAERS Safety Report 14850660 (Version 1)
Quarter: 2018Q2

REPORT INFORMATION
  Report Type: Spontaneous
  Country: US (occurrence: US)
  Receive Date: 20180506
  Receipt Date: 20180506
  Transmission Date: 20180711
  Serious: No
  Sender: FDA-Public Use
  Company Number: US-IPSEN BIOPHARMACEUTICALS, INC.-2018-01944

PATIENT
  Age: 21 Year
  Sex: Male

DRUGS (2)
  1. SOMATULINE [Suspect]
     Active Substance: LANREOTIDE ACETATE
     Indication: ACROMEGALY
     Dosage: NOT REPORTED
     Route: 065
  2. SOMATULINE [Suspect]
     Active Substance: LANREOTIDE ACETATE
     Indication: GIGANTISM

REACTIONS (1)
  - Dizziness [Unknown]

NARRATIVE: CASE EVENT DATE: 201801
